FAERS Safety Report 7670244-4 (Version None)
Quarter: 2011Q3

REPORT INFORMATION
  Report Type: 
  Country: None (occurrence: None)
  Receive Date: 20110809
  Receipt Date: 20110801
  Transmission Date: 20111222
  Serious: Yes (Other)
  Sender: FDA-Public Use
  Company Number: ES-BRISTOL-MYERS SQUIBB COMPANY-15952047

PATIENT
  Age: 69 Year
  Sex: Male

DRUGS (1)
  1. MITOMYCIN [Suspect]
     Indication: BLADDER CANCER
     Dosage: ROUTE OF ADMINISTRATION:IJ MITOMYCIN INJ
     Dates: start: 20101026, end: 20101213

REACTIONS (2)
  - HYPERSENSITIVITY [None]
  - POLLAKIURIA [None]
